FAERS Safety Report 25684969 (Version 1)
Quarter: 2025Q3

REPORT INFORMATION
  Report Type: Spontaneous
  Country: US (occurrence: None)
  Receive Date: 20250815
  Receipt Date: 20250815
  Transmission Date: 20251020
  Serious: Yes (Hospitalization)
  Sender: FDA-CTU
  Company Number: None

PATIENT
  Age: 68 Year
  Sex: Female
  Weight: 81.64 kg

DRUGS (3)
  1. FLUOROURACIL [Suspect]
     Active Substance: FLUOROURACIL
     Dates: end: 20250808
  2. LEUCOVORIN CALCIUM [Suspect]
     Active Substance: LEUCOVORIN CALCIUM
     Dates: end: 20250808
  3. ELOXATIN [Suspect]
     Active Substance: OXALIPLATIN
     Dates: end: 20250808

REACTIONS (12)
  - Rectal haemorrhage [None]
  - Abdominal pain lower [None]
  - Muscle spasms [None]
  - Paraesthesia [None]
  - Frequent bowel movements [None]
  - Nausea [None]
  - Decreased appetite [None]
  - Hyperhidrosis [None]
  - Dehydration [None]
  - Neutropenia [None]
  - Diverticulitis [None]
  - Blood lactic acid increased [None]

NARRATIVE: CASE EVENT DATE: 20250811
